FAERS Safety Report 18310175 (Version 1)
Quarter: 2020Q3

REPORT INFORMATION
  Report Type: Spontaneous
  Country: US (occurrence: US)
  Receive Date: 20200924
  Receipt Date: 20200924
  Transmission Date: 20201103
  Serious: No
  Sender: FDA-Public Use
  Company Number: US-REDHILL BIOPHARMA-2020RDH00031

PATIENT
  Age: 74 Year
  Sex: Male
  Weight: 80.27 kg

DRUGS (4)
  1. ZYTIGA [Concomitant]
     Active Substance: ABIRATERONE ACETATE
  2. NORCO [Concomitant]
     Active Substance: ACETAMINOPHEN\HYDROCODONE BITARTRATE
  3. MOVANTIK [Suspect]
     Active Substance: NALOXEGOL OXALATE
     Indication: CONSTIPATION
     Dosage: 12.5 MG, 1X/DAY
     Route: 048
     Dates: start: 20200731
  4. HYDROCODONE [Concomitant]
     Active Substance: HYDROCODONE

REACTIONS (7)
  - Hypophagia [Not Recovered/Not Resolved]
  - Flatulence [Unknown]
  - Muscle spasms [Unknown]
  - Abdominal discomfort [Unknown]
  - Therapeutic product effect decreased [Not Recovered/Not Resolved]
  - Dry mouth [Recovered/Resolved]
  - Diarrhoea [Unknown]

NARRATIVE: CASE EVENT DATE: 20200731
